FAERS Safety Report 22093757 (Version 2)
Quarter: 2023Q1

REPORT INFORMATION
  Report Type: Spontaneous
  Country: SA (occurrence: SA)
  Receive Date: 20230314
  Receipt Date: 20230315
  Transmission Date: 20230417
  Serious: Yes (Other)
  Sender: FDA-Public Use
  Company Number: SA-MALLINCKRODT-MNK202300335

PATIENT
  Age: 11 Year
  Sex: Male

DRUGS (14)
  1. UVADEX [Suspect]
     Active Substance: METHOXSALEN
     Indication: Graft versus host disease in skin
     Route: 050
  2. UVADEX [Suspect]
     Active Substance: METHOXSALEN
     Indication: Graft versus host disease in gastrointestinal tract
  3. CYCLOPHOSPHAMIDE [Concomitant]
     Active Substance: CYCLOPHOSPHAMIDE
     Dosage: TWO DOSES OF 500 MG, WITH 80 ML OF DEXTROSE 5% IN WATER OVER ONE HOUR, ON DAY + 3 AND DAY + 4
     Route: 042
  4. CYCLOSPORINE [Concomitant]
     Active Substance: CYCLOSPORINE
     Dosage: STARTED ON DAY + 5
  5. MYCOPHENOLATE MOFETIL [Concomitant]
     Active Substance: MYCOPHENOLATE MOFETIL
     Dosage: UNKOWN
  6. TACROLIMUS [Concomitant]
     Active Substance: TACROLIMUS
     Dosage: UNKNOWN
  7. PREDNISOLONE [Concomitant]
     Active Substance: PREDNISOLONE
     Dosage: 1 MG/KG/DAY
  8. PREDNISOLONE [Concomitant]
     Active Substance: PREDNISOLONE
     Dosage: 0.5 MG/KG/DAY
  9. BUDESONIDE [Concomitant]
     Active Substance: BUDESONIDE
     Dosage: UNKNOWN
  10. BUDESONIDE [Concomitant]
     Active Substance: BUDESONIDE
  11. SIROLIMUS [Concomitant]
     Active Substance: SIROLIMUS
     Dosage: UNKNOWN
  12. SIROLIMUS [Concomitant]
     Active Substance: SIROLIMUS
     Dosage: TAPERED OFF
  13. RUXOLITINIB [Concomitant]
     Active Substance: RUXOLITINIB
     Dosage: UNKNOWN
  14. RUXOLITINIB [Concomitant]
     Active Substance: RUXOLITINIB

REACTIONS (9)
  - Kaposi^s sarcoma [Recovered/Resolved]
  - Cytomegalovirus infection [Unknown]
  - Clostridium difficile infection [Unknown]
  - Hyperglycaemia [Unknown]
  - Haematuria [Unknown]
  - BK polyomavirus test positive [Unknown]
  - Pyrexia [Unknown]
  - Hypertension [Unknown]
  - Drug effective for unapproved indication [Unknown]
